FAERS Safety Report 7758177-6 (Version None)
Quarter: 2011Q3

REPORT INFORMATION
  Report Type: 
  Country: None (occurrence: None)
  Receive Date: 20110919
  Receipt Date: 20110912
  Transmission Date: 20111222
  Serious: No
  Sender: FDA-Public Use
  Company Number: US-BIOGENIDEC-2011BI034905

PATIENT
  Age: 29 Year
  Sex: Female

DRUGS (5)
  1. COPAXONE [Concomitant]
     Indication: MULTIPLE SCLEROSIS
  2. AVONEX [Suspect]
     Route: 030
     Dates: start: 20080422, end: 20081001
  3. AVONEX [Suspect]
     Indication: MULTIPLE SCLEROSIS
     Route: 030
     Dates: start: 20100704
  4. AVONEX [Suspect]
     Route: 030
     Dates: start: 20060210, end: 20071020
  5. PERCOCET [Concomitant]
     Indication: PAIN

REACTIONS (5)
  - NAUSEA [None]
  - INSOMNIA [None]
  - PAIN [None]
  - FEELING COLD [None]
  - HYPERHIDROSIS [None]
